APPROVED DRUG PRODUCT: OMNIPAQUE 240
Active Ingredient: IOHEXOL
Strength: 51.8%
Dosage Form/Route: SOLUTION;INJECTION, ORAL, RECTAL
Application: N018956 | Product #002
Applicant: GE HEALTHCARE
Approved: Dec 26, 1985 | RLD: Yes | RS: Yes | Type: RX